APPROVED DRUG PRODUCT: PHENTERMINE HYDROCHLORIDE
Active Ingredient: PHENTERMINE HYDROCHLORIDE
Strength: 15MG
Dosage Form/Route: CAPSULE;ORAL
Application: A040460 | Product #001
Applicant: ELITE LABORATORIES INC
Approved: Jan 14, 2003 | RLD: No | RS: No | Type: DISCN